FAERS Safety Report 5452370-3 (Version None)
Quarter: 2007Q3

REPORT INFORMATION
  Report Type: 
  Country: None (occurrence: None)
  Receive Date: 20070914
  Receipt Date: 20070911
  Transmission Date: 20080115
  Serious: Yes (Death, Other)
  Sender: FDA-Public Use
  Company Number: FI-ABBOTT-07P-055-0416910-00

PATIENT

DRUGS (10)
  1. CYCLOSPORINE [Suspect]
     Indication: IMMUNOSUPPRESSION
     Route: 048
  2. CYCLOSPORINE [Suspect]
  3. CYCLOSPORINE [Suspect]
  4. AZATHIOPRINE [Suspect]
     Indication: IMMUNOSUPPRESSION
     Route: 065
  5. AZATHIOPRINE [Suspect]
     Route: 048
  6. AZATHIOPRINE [Suspect]
     Route: 048
  7. METHYLPREDNISOLONE 16MG TAB [Suspect]
     Indication: IMMUNOSUPPRESSION
     Route: 042
  8. METHYLPREDNISOLONE 16MG TAB [Suspect]
     Route: 048
  9. METHYLPREDNISOLONE 16MG TAB [Suspect]
     Route: 048
  10. METHYLPREDNISOLONE 16MG TAB [Suspect]
     Route: 048

REACTIONS (1)
  - NEOPLASM MALIGNANT [None]
